FAERS Safety Report 9229904 (Version 1)
Quarter: 2013Q2

REPORT INFORMATION
  Report Type: Spontaneous
  Country: US (occurrence: None)
  Receive Date: 20130411
  Receipt Date: 20130411
  Transmission Date: 20140414
  Serious: Yes (Other)
  Sender: FDA-Public Use
  Company Number: DSU-2013-02630

PATIENT
  Age: 51 Year
  Sex: Female
  Weight: 136.08 kg

DRUGS (5)
  1. BENICAR (OLMESARTAN MEDOXOMIL) (20 MILLIGRAM, TABLET) (OLMESARTAN MEDOXOMIL) [Suspect]
     Indication: CARDIOVASCULAR EVENT PROPHYLAXIS
     Dosage: 20 MG (20 MG, QD), PER ORAL
     Route: 048
     Dates: start: 2007
  2. BENICAR (OLMESARTAN MEDOXOMIL) (20 MILLIGRAM, TABLET) (OLMESARTAN MEDOXOMIL) [Suspect]
     Indication: HYPERTENSION
     Dosage: 20 MG (20 MG, QD), PER ORAL
     Route: 048
     Dates: start: 2007
  3. UNSPECIFIED MEDICATION (INGREDIENTS [Suspect]
     Indication: CARDIOVASCULAR EVENT PROPHYLAXIS
     Dates: start: 2012, end: 2012
  4. UNSPECIFIED MEDICATION (INGREDIENTS [Suspect]
     Indication: HYPERTENSION
     Dates: start: 2012, end: 2012
  5. ATENOLOL (ATENOLOL) (ATENOLOL) [Concomitant]

REACTIONS (8)
  - Alopecia [None]
  - Condition aggravated [None]
  - Generalised oedema [None]
  - Cataract [None]
  - Cyst [None]
  - Fall [None]
  - Cartilage injury [None]
  - Cerebrovascular accident [None]
